FAERS Safety Report 20382361 (Version 1)
Quarter: 2022Q1

REPORT INFORMATION
  Report Type: Spontaneous
  Country: US (occurrence: None)
  Receive Date: 20220127
  Receipt Date: 20220127
  Transmission Date: 20220424
  Serious: Yes (Death)
  Sender: FDA-Public Use
  Company Number: None

PATIENT
  Age: 79 Year
  Sex: Male
  Weight: 126 kg

DRUGS (1)
  1. BARICITINIB [Suspect]
     Active Substance: BARICITINIB
     Indication: Upper respiratory tract infection
     Dosage: FREQUENCY : DAILY;?
     Route: 048
     Dates: start: 20220121, end: 20220122

REACTIONS (2)
  - Respiratory depression [None]
  - Hypertension [None]

NARRATIVE: CASE EVENT DATE: 20220123
